FAERS Safety Report 7084121-3 (Version None)
Quarter: 2010Q4

REPORT INFORMATION
  Report Type: 
  Country: None (occurrence: None)
  Receive Date: 20101104
  Receipt Date: 20100324
  Transmission Date: 20110411
  Serious: Yes (Hospitalization)
  Sender: FDA-Public Use
  Company Number: US-BAYER-200942166NA

PATIENT
  Age: 42 Year
  Sex: Female
  Weight: 48 kg

DRUGS (13)
  1. YAZ [Suspect]
     Indication: ORAL CONTRACEPTION
     Route: 050
  2. YASMIN [Suspect]
     Indication: ORAL CONTRACEPTION
     Route: 048
  3. BENTYL [Concomitant]
     Indication: IRRITABLE BOWEL SYNDROME
  4. INDERAL [Concomitant]
     Indication: PALPITATIONS
     Dosage: AS NEEDED FOR PALPITATIONS
  5. PROPRANOLOL [Concomitant]
  6. 777 [Concomitant]
     Dates: start: 20070710
  7. DILAUDID [Concomitant]
     Indication: PAIN
     Dosage: AS NEEDED FOR PAIN
     Route: 042
     Dates: start: 20071201, end: 20071201
  8. DILAUDID [Concomitant]
     Dosage: AS NEEDED FOR PAIN
     Route: 048
     Dates: start: 20071201
  9. REGLAN [Concomitant]
     Indication: NAUSEA
     Dosage: AS NEEDED FOR NAUSEA
     Route: 040
     Dates: start: 20071201
  10. AMBIEN [Concomitant]
     Indication: INSOMNIA
     Dosage: AS NEEDED FOR INSOMNIA
     Dates: start: 20071201, end: 20071201
  11. ACETAMINOPHEN [Concomitant]
     Route: 048
     Dates: start: 20071201, end: 20071201
  12. PREVACID [Concomitant]
     Route: 048
     Dates: start: 20071201, end: 20071201
  13. MELATONIN [Concomitant]

REACTIONS (10)
  - BACK PAIN [None]
  - COUGH [None]
  - DEEP VEIN THROMBOSIS [None]
  - DYSPNOEA [None]
  - OEDEMA PERIPHERAL [None]
  - PAIN IN EXTREMITY [None]
  - PLEURAL EFFUSION [None]
  - PLEURISY [None]
  - PLEURITIC PAIN [None]
  - PULMONARY EMBOLISM [None]
